FAERS Safety Report 16789847 (Version 1)
Quarter: 2019Q3

REPORT INFORMATION
  Report Type: Report from Study
  Country: CN (occurrence: CN)
  Receive Date: 20190910
  Receipt Date: 20190910
  Transmission Date: 20191005
  Serious: Yes (Other)
  Sender: FDA-Public Use
  Company Number: CN-BAYER-2019-162002

PATIENT
  Age: 75 Year
  Sex: Male

DRUGS (3)
  1. IMIPENEM [CILASTATIN SODIUM;IMIPENEM] [Concomitant]
     Active Substance: CILASTATIN SODIUM\IMIPENEM
  2. MOXIFLOXACIN. [Suspect]
     Active Substance: MOXIFLOXACIN
     Indication: KLEBSIELLA INFECTION
  3. PIPERACILLIN AND TAZOBACTAM [Concomitant]
     Active Substance: PIPERACILLIN SODIUM\TAZOBACTAM SODIUM

REACTIONS (1)
  - Pathogen resistance [None]
